FAERS Safety Report 11951512 (Version 2)
Quarter: 2016Q1

REPORT INFORMATION
  Report Type: Report from Study
  Country: CA (occurrence: CA)
  Receive Date: 20160125
  Receipt Date: 20160201
  Transmission Date: 20160526
  Serious: Yes (Hospitalization, Other)
  Sender: FDA-Public Use
  Company Number: CA-ABBVIE-15K-028-1492993-00

PATIENT
  Age: 60 Year
  Sex: Male

DRUGS (1)
  1. HUMIRA [Suspect]
     Active Substance: ADALIMUMAB
     Indication: CROHN^S DISEASE
     Route: 058
     Dates: start: 20151019, end: 201511

REACTIONS (6)
  - Dyspnoea [Recovered/Resolved]
  - Gastrointestinal infection [Unknown]
  - Gastrointestinal inflammation [Unknown]
  - Back pain [Recovered/Resolved]
  - Drug ineffective [Not Recovered/Not Resolved]
  - Procedural haemorrhage [Unknown]

NARRATIVE: CASE EVENT DATE: 2015
